FAERS Safety Report 9296945 (Version 3)
Quarter: 2013Q4

REPORT INFORMATION
  Report Type: Report from Study
  Country: CA (occurrence: CA)
  Receive Date: 20130518
  Receipt Date: 20131205
  Transmission Date: 20140711
  Serious: Yes (Other)
  Sender: FDA-Public Use
  Company Number: CA-ROCHE-1226103

PATIENT
  Sex: Female
  Weight: 117.13 kg

DRUGS (15)
  1. RITUXAN [Suspect]
     Indication: RHEUMATOID ARTHRITIS
     Route: 042
     Dates: start: 20080603
  2. RITUXAN [Suspect]
     Route: 042
     Dates: start: 20091116
  3. DIPHENHYDRAMINE HCL [Concomitant]
     Route: 048
     Dates: start: 20091116
  4. ACETAMINOPHEN [Concomitant]
     Route: 048
     Dates: start: 20091116
  5. METHYLPREDNISOLONE [Concomitant]
     Route: 042
     Dates: start: 20091116
  6. DOXAZOSIN [Concomitant]
  7. CALCITE D [Concomitant]
  8. PANTOLOC [Concomitant]
  9. COVERSYL [Concomitant]
  10. NIFEDIPINE [Concomitant]
     Dosage: EX
     Route: 065
  11. OXAZEPAM [Concomitant]
     Route: 065
  12. ASAPHEN [Concomitant]
     Dosage: EC
     Route: 065
  13. HYDROCHLOROTHIAZIDE [Concomitant]
  14. ACETAMINOPHEN [Concomitant]
     Dosage: EXTRA STRENGTH
     Route: 065
  15. EURO-K [Concomitant]
     Dosage: (POTASSIUM SUPPLEMENT)
     Route: 065

REACTIONS (3)
  - Hypothyroidism [Not Recovered/Not Resolved]
  - Musculoskeletal pain [Not Recovered/Not Resolved]
  - Weight increased [Unknown]
